FAERS Safety Report 10520892 (Version 3)
Quarter: 2014Q4

REPORT INFORMATION
  Report Type: Spontaneous
  Country: FR (occurrence: FR)
  Receive Date: 20141016
  Receipt Date: 20141128
  Transmission Date: 20150528
  Serious: Yes (Hospitalization, Other)
  Sender: FDA-Public Use
  Company Number: FR-AMGEN-FRASP2014057826

PATIENT
  Age: 25 Year
  Sex: Male
  Weight: 72 kg

DRUGS (3)
  1. DAIVOBET [Concomitant]
     Active Substance: BETAMETHASONE DIPROPIONATE\CALCIPOTRIENE
     Dosage: UNK
  2. ENBREL [Suspect]
     Active Substance: ETANERCEPT
     Dosage: 50 MG, WEEKLY
     Route: 065
     Dates: start: 201311, end: 201404
  3. ENBREL [Suspect]
     Active Substance: ETANERCEPT
     Indication: PSORIASIS
     Dosage: 50 MG, 2X/WEEK
     Route: 065
     Dates: start: 20120902

REACTIONS (11)
  - Lymphadenopathy mediastinal [Recovering/Resolving]
  - Sarcoidosis [Recovering/Resolving]
  - Hilar lymphadenopathy [Recovering/Resolving]
  - Diaphragm neoplasm [Recovering/Resolving]
  - Wheezing [Recovering/Resolving]
  - Interstitial lung disease [Recovering/Resolving]
  - Hepatomegaly [Recovering/Resolving]
  - Lymphopenia [Recovering/Resolving]
  - Pulmonary mass [Recovering/Resolving]
  - Mycobacterial infection [Recovering/Resolving]
  - Blood disorder [Recovering/Resolving]

NARRATIVE: CASE EVENT DATE: 201403
